FAERS Safety Report 4673946-7 (Version None)
Quarter: 2005Q2

REPORT INFORMATION
  Report Type: 
  Country: None (occurrence: None)
  Receive Date: 20050525
  Receipt Date: 20050510
  Transmission Date: 20051028
  Serious: Yes (Other)
  Sender: FDA-Public Use
  Company Number: US-AMGEN-US132782

PATIENT
  Sex: Female

DRUGS (9)
  1. ENBREL [Suspect]
     Indication: RHEUMATOID ARTHRITIS
     Route: 058
     Dates: start: 20030430, end: 20050101
  2. METHOTREXATE [Suspect]
     Route: 048
     Dates: start: 19911201
  3. FELDENE [Concomitant]
     Route: 048
     Dates: start: 19960101
  4. FOLIC ACID [Concomitant]
     Dates: start: 19911201
  5. PROCARDIA [Concomitant]
     Route: 048
  6. CAPOTEN [Concomitant]
     Route: 048
  7. LASIX [Concomitant]
     Route: 048
  8. KLOR-CON [Concomitant]
     Route: 048
  9. VITAMIN B-12 [Concomitant]
     Route: 048

REACTIONS (1)
  - IMPAIRED HEALING [None]
